FAERS Safety Report 10086233 (Version 1)
Quarter: 2014Q2

REPORT INFORMATION
  Report Type: Spontaneous
  Country: US (occurrence: None)
  Receive Date: 20140417
  Receipt Date: 20140417
  Transmission Date: 20141212
  Serious: No
  Sender: FDA-Public Use
  Company Number: None

PATIENT
  Age: 57 Year
  Sex: Female
  Weight: 90.27 kg

DRUGS (1)
  1. MIRVASO [Suspect]
     Indication: ROSACEA
     Dosage: PEA SIZE APPLIED DAILY TOPICALLY TO SKIN FOR 2 DAYS.

REACTIONS (4)
  - Hot flush [None]
  - Sunburn [None]
  - Hyperhidrosis [None]
  - Application site erythema [None]
